FAERS Safety Report 18227155 (Version 1)
Quarter: 2020Q3

REPORT INFORMATION
  Report Type: Spontaneous
  Country: US (occurrence: US)
  Receive Date: 20200902
  Receipt Date: 20200902
  Transmission Date: 20201103
  Serious: No
  Sender: FDA-Public Use
  Company Number: None

PATIENT
  Age: 75 Year
  Sex: Male
  Weight: 100 kg

DRUGS (1)
  1. LISINOPRIL (LISINOPRIL 5MG TAB) [Suspect]
     Active Substance: LISINOPRIL
     Indication: ATRIAL FIBRILLATION
     Dosage: ?          OTHER DOSE:1 TAB;?
     Route: 048
     Dates: start: 20200307, end: 20200311

REACTIONS (2)
  - Oropharyngeal blistering [None]
  - Angioedema [None]

NARRATIVE: CASE EVENT DATE: 20200312
